FAERS Safety Report 23785180 (Version 1)
Quarter: 2024Q2

REPORT INFORMATION
  Report Type: Spontaneous
  Country: CN (occurrence: CN)
  Receive Date: 20240425
  Receipt Date: 20240425
  Transmission Date: 20240716
  Serious: Yes (Hospitalization)
  Sender: FDA-Public Use
  Company Number: CN-PFIZER INC-PV202400052905

PATIENT
  Age: 24 Year
  Sex: Female
  Weight: 53 kg

DRUGS (2)
  1. AZITHROMYCIN [Suspect]
     Active Substance: AZITHROMYCIN
     Dosage: 6.000 DF, 1X/DAY
     Route: 048
     Dates: start: 20240301, end: 20240301
  2. IBUPROFEN [Suspect]
     Active Substance: IBUPROFEN
     Dosage: 20 DF, 1X/DAY
     Route: 048
     Dates: start: 20240301, end: 20240301

REACTIONS (4)
  - Toxicity to various agents [Recovering/Resolving]
  - Dizziness [Recovering/Resolving]
  - Asthenia [Recovering/Resolving]
  - Intentional overdose [Unknown]

NARRATIVE: CASE EVENT DATE: 20240301
